FAERS Safety Report 6782402 (Version 2)
Quarter: 2013Q2

REPORT INFORMATION
  Report Type: Spontaneous
  Country: US (occurrence: US)
  Receive Date: 20081008
  Receipt Date: 20130503
  Transmission Date: 20140414
  Serious: Yes (Other)
  Sender: FDA-Public Use
  Company Number: US-AMGEN-US311665

PATIENT
  Sex: Male
  Weight: 2.1 kg

DRUGS (4)
  1. ENBREL [Suspect]
     Indication: PSORIATIC ARTHROPATHY
     Dosage: UNK UNK, UNK
     Route: 064
     Dates: start: 20050301
  2. PREDNISONE [Concomitant]
     Dosage: UNK UNK, UNK
     Route: 064
  3. PSYLLIUM HYDROPHILIC MUCILLOID [Concomitant]
     Dosage: UNK UNK, UNK
     Route: 064
  4. FAMOTIDINE [Concomitant]
     Dosage: UNK UNK, UNK
     Route: 064

REACTIONS (3)
  - Foetal heart rate deceleration [Unknown]
  - Premature baby [Unknown]
  - Low birth weight baby [Unknown]
